FAERS Safety Report 24239094 (Version 2)
Quarter: 2024Q4

REPORT INFORMATION
  Report Type: Spontaneous
  Country: US (occurrence: US)
  Receive Date: 20240822
  Receipt Date: 20241125
  Transmission Date: 20250115
  Serious: No
  Sender: AVADEL CNS PHARMACEUTICALS, LLC
  Company Number: US-AVADEL CNS PHARMACEUTICALS, LLC-2024AVA00798

PATIENT
  Sex: Male

DRUGS (22)
  1. LUMRYZ [Suspect]
     Active Substance: SODIUM OXYBATE
     Indication: Narcolepsy
     Dosage: 4.5 G, ONCE NIGHTLY
     Route: 048
     Dates: start: 202405, end: 202405
  2. LUMRYZ [Suspect]
     Active Substance: SODIUM OXYBATE
     Indication: Hypersomnia
  3. LUMRYZ [Suspect]
     Active Substance: SODIUM OXYBATE
     Indication: Narcolepsy
     Dosage: 6 G, ONCE NIGHTLY
     Route: 048
     Dates: start: 202405, end: 202406
  4. LUMRYZ [Suspect]
     Active Substance: SODIUM OXYBATE
     Indication: Hypersomnia
  5. LUMRYZ [Suspect]
     Active Substance: SODIUM OXYBATE
     Indication: Narcolepsy
     Dosage: 7.5 G, ONCE NIGHLTLY
     Route: 048
     Dates: start: 202406, end: 20240612
  6. LUMRYZ [Suspect]
     Active Substance: SODIUM OXYBATE
     Indication: Hypersomnia
     Dosage: 7.5 G, ONCE NIGHTLY
     Route: 048
     Dates: start: 202406
  7. ZOLOFT [Suspect]
     Active Substance: SERTRALINE HYDROCHLORIDE
     Dosage: UNK
     Dates: end: 20240512
  8. BUPROPION [Suspect]
     Active Substance: BUPROPION
     Dosage: UNK
     Dates: end: 20240512
  9. LEXAPRO [Suspect]
     Active Substance: ESCITALOPRAM OXALATE
     Dosage: UNK
     Dates: end: 2024
  10. VITAMINS [Concomitant]
     Active Substance: VITAMINS
     Dosage: UNK
     Dates: end: 20240612
  11. VITAMINS [Concomitant]
     Active Substance: VITAMINS
     Dosage: UNK
     Dates: start: 202406
  12. UNSPECIFIED INGREDIENT [Concomitant]
     Active Substance: UNSPECIFIED INGREDIENT
     Dosage: UNK
     Dates: end: 20240612
  13. UNSPECIFIED INGREDIENT [Concomitant]
     Active Substance: UNSPECIFIED INGREDIENT
     Dosage: UNK
     Dates: start: 202406
  14. MINOXIDIL [Concomitant]
     Active Substance: MINOXIDIL
     Dosage: UNK
     Dates: end: 20240612
  15. MINOXIDIL [Concomitant]
     Active Substance: MINOXIDIL
     Dosage: UNK
     Dates: start: 202406
  16. FINASTERIDE [Concomitant]
     Active Substance: FINASTERIDE
     Dosage: UNK
     Dates: end: 20240612
  17. FINASTERIDE [Concomitant]
     Active Substance: FINASTERIDE
     Dosage: UNK
     Dates: start: 202406
  18. UNSPECIFIED TESTOSTERONE REPLACEMENT [Concomitant]
     Dosage: UNK
     Dates: end: 20240612
  19. UNSPECIFIED TESTOSTERONE REPLACEMENT [Concomitant]
     Dosage: UNK
     Dates: start: 202406
  20. MODAFINIL [Concomitant]
     Active Substance: MODAFINIL
     Dosage: UNK
  21. ADDERALL [Concomitant]
     Active Substance: AMPHETAMINE ASPARTATE\AMPHETAMINE SULFATE\DEXTROAMPHETAMINE SACCHARATE\DEXTROAMPHETAMINE SULFATE
     Dosage: 10 MG, DAILY
     Dates: end: 20240612
  22. ADDERALL [Concomitant]
     Active Substance: AMPHETAMINE ASPARTATE\AMPHETAMINE SULFATE\DEXTROAMPHETAMINE SACCHARATE\DEXTROAMPHETAMINE SULFATE
     Dosage: 10 MG, DAILY
     Dates: start: 202406

REACTIONS (9)
  - Initial insomnia [Not Recovered/Not Resolved]
  - Brain fog [Recovered/Resolved]
  - Palpitations [Recovering/Resolving]
  - Heart rate increased [Recovering/Resolving]
  - Feeling abnormal [Unknown]
  - Therapeutic response unexpected [Not Recovered/Not Resolved]
  - Headache [Not Recovered/Not Resolved]
  - Confusional state [Recovered/Resolved]
  - Unevaluable event [Unknown]

NARRATIVE: CASE EVENT DATE: 20240101
